FAERS Safety Report 13416722 (Version 2)
Quarter: 2017Q2

REPORT INFORMATION
  Report Type: Spontaneous
  Country: TH (occurrence: TH)
  Receive Date: 20170407
  Receipt Date: 20170411
  Transmission Date: 20170830
  Serious: Yes (Hospitalization, Other)
  Sender: FDA-Public Use
  Company Number: TH-BAUSCH-BL-2017-008256

PATIENT
  Age: 45 Year
  Sex: Male

DRUGS (2)
  1. ENALAPRIL [Suspect]
     Active Substance: ENALAPRIL
     Indication: PRODUCT USED FOR UNKNOWN INDICATION
     Route: 065
  2. ENALAPRIL [Suspect]
     Active Substance: ENALAPRIL
     Dosage: DOSE: (20) ?X2
     Route: 065

REACTIONS (4)
  - Drug interaction [Recovering/Resolving]
  - Food interaction [Recovering/Resolving]
  - Hyperkalaemia [Recovered/Resolved]
  - Acute kidney injury [Recovering/Resolving]
